FAERS Safety Report 15987243 (Version 2)
Quarter: 2019Q1

REPORT INFORMATION
  Report Type: Spontaneous
  Country: US (occurrence: US)
  Receive Date: 20190220
  Receipt Date: 20190220
  Transmission Date: 20190418
  Serious: Yes (Hospitalization)
  Sender: FDA-Public Use
  Company Number: PHHY2019US031198

PATIENT
  Age: 60 Year
  Sex: Female

DRUGS (3)
  1. TRAMETINIB [Suspect]
     Active Substance: TRAMETINIB
     Indication: METASTATIC MALIGNANT MELANOMA
     Route: 065
  2. AMOXICILLIN+CLAVULANIC ACID [Suspect]
     Active Substance: AMOXICILLIN\CLAVULANIC ACID
     Indication: PNEUMONIA
     Route: 065
  3. DABRAFENIB [Suspect]
     Active Substance: DABRAFENIB
     Indication: METASTATIC MALIGNANT MELANOMA
     Route: 065

REACTIONS (11)
  - Pemphigoid [Unknown]
  - Stomatitis [Unknown]
  - Rash morbilliform [Recovered/Resolved]
  - Pyrexia [Unknown]
  - Mental status changes [Unknown]
  - Lip swelling [Unknown]
  - Dysphagia [Unknown]
  - Transaminases increased [Unknown]
  - Systemic inflammatory response syndrome [Recovered/Resolved]
  - Hypotension [Unknown]
  - Organ failure [Unknown]
